FAERS Safety Report 22605089 (Version 1)
Quarter: 2023Q2

REPORT INFORMATION
  Report Type: Spontaneous
  Country: US (occurrence: US)
  Receive Date: 20230615
  Receipt Date: 20230615
  Transmission Date: 20230722
  Serious: Yes (Other)
  Sender: FDA-Public Use
  Company Number: US-EPIZYME, INC.-2023USEPIZYME0857

PATIENT
  Age: 74 Year
  Sex: Female

DRUGS (30)
  1. TAZVERIK [Suspect]
     Active Substance: TAZEMETOSTAT HYDROBROMIDE
     Indication: Follicular lymphoma
     Dosage: 200 MG, QD
     Route: 048
     Dates: start: 20230227
  2. ACETAMINOPHEN [Concomitant]
     Active Substance: ACETAMINOPHEN
  3. ARANESP [Concomitant]
     Active Substance: DARBEPOETIN ALFA
  4. ASPIRIN [Concomitant]
     Active Substance: ASPIRIN
  5. ATORVASTATIN [Concomitant]
     Active Substance: ATORVASTATIN
  6. CALCIUM [Concomitant]
     Active Substance: CALCIUM
     Dosage: 600 UNK
  7. CARVEDILOL [Concomitant]
     Active Substance: CARVEDILOL
  8. CITALOPRAM [Concomitant]
     Active Substance: CITALOPRAM HYDROBROMIDE
  9. CREON [Concomitant]
     Active Substance: PANCRELIPASE AMYLASE\PANCRELIPASE LIPASE\PANCRELIPASE PROTEASE
  10. VITAMIN D3 [Concomitant]
     Active Substance: CHOLECALCIFEROL
  11. ELIQUIS [Concomitant]
     Active Substance: APIXABAN
  12. EZETIMIBE [Concomitant]
     Active Substance: EZETIMIBE
  13. FOLIC ACID [Concomitant]
     Active Substance: FOLIC ACID
  14. GLIPIZIDE [Concomitant]
     Active Substance: GLIPIZIDE
  15. HUMALOG [Concomitant]
     Active Substance: INSULIN LISPRO
  16. LANTUS [Concomitant]
     Active Substance: INSULIN GLARGINE
  17. LASIX [Concomitant]
     Active Substance: FUROSEMIDE
  18. LISINOPRIL [Concomitant]
     Active Substance: LISINOPRIL
  19. LORAZEPAM [Concomitant]
     Active Substance: LORAZEPAM
  20. MAGNESIUM OXIDE [Concomitant]
     Active Substance: MAGNESIUM OXIDE
  21. NEXIUM [Concomitant]
     Active Substance: ESOMEPRAZOLE MAGNESIUM
  22. ONDANSETRON [Concomitant]
     Active Substance: ONDANSETRON
  23. POTASSIUM CHLORIDE [Concomitant]
     Active Substance: POTASSIUM CHLORIDE
  24. PROCHLORPERAZINE [Concomitant]
     Active Substance: PROCHLORPERAZINE
  25. PROVENTIL [Concomitant]
     Active Substance: ALBUTEROL
  26. SYNTHROID [Concomitant]
     Active Substance: LEVOTHYROXINE SODIUM
  27. TRAMADOL [Concomitant]
     Active Substance: TRAMADOL
  28. TRELEGY ELLIPTA [Concomitant]
     Active Substance: FLUTICASONE FUROATE\UMECLIDINIUM BROMIDE\VILANTEROL TRIFENATATE
  29. VENLAFAXINE [Concomitant]
     Active Substance: VENLAFAXINE HYDROCHLORIDE
  30. FOLATE SODIUM [Concomitant]
     Active Substance: FOLATE SODIUM

REACTIONS (8)
  - Anaemia [Unknown]
  - Constipation [Unknown]
  - Nausea [Unknown]
  - Fatigue [Unknown]
  - Fluid retention [Not Recovered/Not Resolved]
  - Anaemia [Not Recovered/Not Resolved]
  - Off label use [Unknown]
  - Drug intolerance [Not Recovered/Not Resolved]

NARRATIVE: CASE EVENT DATE: 20230227
